FAERS Safety Report 7553712-5 (Version None)
Quarter: 2011Q2

REPORT INFORMATION
  Report Type: 
  Country: None (occurrence: None)
  Receive Date: 20110614
  Receipt Date: 20110614
  Transmission Date: 20111010
  Serious: No
  Sender: FDA-Public Use
  Company Number: None

PATIENT
  Sex: Male

DRUGS (1)
  1. BENDAMUSTINE 90 MG/M2 TIMES MONTHLY 2 CEPHALON [Suspect]
     Indication: CHRONIC LYMPHOCYTIC LEUKAEMIA
     Dates: start: 20100601, end: 20101101

REACTIONS (6)
  - CHRONIC LYMPHOCYTIC LEUKAEMIA TRANSFORMATION [None]
  - FEBRILE NEUTROPENIA [None]
  - CHRONIC LYMPHOCYTIC LEUKAEMIA [None]
  - DRUG INTOLERANCE [None]
  - PANCYTOPENIA [None]
  - NEOPLASM PROGRESSION [None]
